FAERS Safety Report 8409459-6 (Version None)
Quarter: 2012Q2

REPORT INFORMATION
  Report Type: 
  Country: None (occurrence: None)
  Receive Date: 20120605
  Receipt Date: 20120522
  Transmission Date: 20120825
  Serious: Yes (Other)
  Sender: FDA-Public Use
  Company Number: BR-RANBAXY-2012RR-56903

PATIENT
  Age: 33 Year
  Sex: Female

DRUGS (2)
  1. TOPIRAMATE [Suspect]
     Indication: MIGRAINE
     Dosage: 25 MG/DAY
     Route: 065
  2. TOPIRAMATE [Suspect]
     Dosage: 100 MG/DAY
     Route: 065

REACTIONS (1)
  - METAMORPHOPSIA [None]
